FAERS Safety Report 4515045-0 (Version None)
Quarter: 2004Q4

REPORT INFORMATION
  Report Type: 
  Country: None (occurrence: None)
  Receive Date: 20041129
  Receipt Date: 20041129
  Transmission Date: 20050328
  Serious: Yes (Hospitalization)
  Sender: FDA-Public Use
  Company Number: None

PATIENT
  Age: 49 Year
  Sex: Male
  Weight: 99.7913 kg

DRUGS (2)
  1. ALTOCOR 40 MG ANDRX [Suspect]
     Indication: HYPERCHOLESTEROLAEMIA
     Dosage: ONE AM ORAL
     Route: 048
     Dates: start: 20040101, end: 20040828
  2. UNIRETIC [Suspect]
     Indication: HYPERTENSION
     Dosage: ONE BID ORAL
     Route: 048
     Dates: start: 20040101, end: 20040828

REACTIONS (1)
  - RHABDOMYOLYSIS [None]
